FAERS Safety Report 7064996-4 (Version None)
Quarter: 2010Q4

REPORT INFORMATION
  Report Type: 
  Country: None (occurrence: None)
  Receive Date: 20101019
  Receipt Date: 20101012
  Transmission Date: 20110411
  Serious: Yes (Other)
  Sender: FDA-Public Use
  Company Number: 2010SP054147

PATIENT
  Age: 47 Year
  Sex: Male

DRUGS (9)
  1. MIRTAZAPINE [Suspect]
     Indication: PRODUCT USED FOR UNKNOWN INDICATION
     Dosage: PO
     Route: 048
     Dates: start: 20090501, end: 20100726
  2. CIPROFLOXACIN [Suspect]
     Indication: CAMPYLOBACTER INTESTINAL INFECTION
     Dosage: 500 MG;BID;PO
     Route: 048
     Dates: start: 20100615, end: 20100625
  3. ATRIPLA [Concomitant]
  4. EUPANTOL [Concomitant]
  5. XYZAL [Concomitant]
  6. VALACYCLOVIR HYDROCHLORIDE [Concomitant]
  7. DAFALGAN [Concomitant]
  8. TRAMADOL HCL [Concomitant]
  9. SERESTA [Concomitant]

REACTIONS (3)
  - ABDOMINAL PAIN [None]
  - BLOOD AMYLASE INCREASED [None]
  - LIPASE INCREASED [None]
